FAERS Safety Report 18503677 (Version 1)
Quarter: 2020Q4

REPORT INFORMATION
  Report Type: Spontaneous
  Country: DE (occurrence: DE)
  Receive Date: 20201113
  Receipt Date: 20201113
  Transmission Date: 20210114
  Serious: Yes (Hospitalization, Other)
  Sender: FDA-Public Use
  Company Number: DE-MYLANLABS-2020M1094643

PATIENT
  Age: 84 Year
  Sex: Female
  Weight: 75 kg

DRUGS (7)
  1. MIRTAZAPIN [Concomitant]
     Active Substance: MIRTAZAPINE
     Dosage: 15 MILLIGRAM, QD (15 MG, 0-0-1-0)
     Route: 048
  2. QUETIAPINE. [Concomitant]
     Active Substance: QUETIAPINE
     Dosage: 50 MILLIGRAM, 1-0-1-0.5
     Route: 048
  3. PREDNISOLON                        /00016201/ [Concomitant]
     Active Substance: PREDNISOLONE
     Dosage: 5 MILLIGRAM, QD (5 MG, 1-0-0-0)
     Route: 048
  4. PANTOPRAZOL                        /01263201/ [Concomitant]
     Active Substance: PANTOPRAZOLE
     Dosage: 20 MILLIGRAM, QD (20 MG, 1-0-0-0)
     Route: 048
  5. TORASEMIDE [Suspect]
     Active Substance: TORSEMIDE
     Indication: PRODUCT USED FOR UNKNOWN INDICATION
     Dosage: 10 MILLIGRAM, BID (10 MG, 1-1-0-0)
     Route: 048
  6. INSULIN GLARGINE [Concomitant]
     Active Substance: INSULIN GLARGINE
     Dosage: UNK, BID (6 IE, 1-0-1-0)
     Route: 048
  7. METFORMIN [Concomitant]
     Active Substance: METFORMIN HYDROCHLORIDE
     Dosage: 500 MILLIGRAM, QD (500 MG, 1-0-1-0)
     Route: 048

REACTIONS (7)
  - General physical health deterioration [Unknown]
  - Thirst [Unknown]
  - Depressed level of consciousness [Unknown]
  - Hypoglycaemia [Unknown]
  - Renal failure [Unknown]
  - Dehydration [Unknown]
  - Atrial fibrillation [Unknown]
